FAERS Safety Report 15178071 (Version 3)
Quarter: 2019Q3

REPORT INFORMATION
  Report Type: Spontaneous
  Country: FR (occurrence: FR)
  Receive Date: 20180721
  Receipt Date: 20190808
  Transmission Date: 20191004
  Serious: Yes (Other)
  Sender: FDA-Public Use
  Company Number: FR-SUN PHARMACEUTICAL INDUSTRIES LTD-2018R1-178946

PATIENT
  Age: 47 Year
  Sex: Male

DRUGS (3)
  1. ZOPICLONE [Suspect]
     Active Substance: ZOPICLONE
     Indication: WITHDRAWAL SYNDROME
     Dosage: 1 DF, DAILY
     Route: 048
     Dates: start: 20180428
  2. OXAZEPAM. [Suspect]
     Active Substance: OXAZEPAM
     Indication: WITHDRAWAL SYNDROME
     Dosage: 30 MG, DAILY
     Route: 048
     Dates: start: 20180428
  3. TRAMADOL. [Suspect]
     Active Substance: TRAMADOL
     Indication: ARTHRALGIA
     Dosage: 300 MG, DAILY
     Route: 048
     Dates: start: 201801, end: 20180428

REACTIONS (2)
  - Drug withdrawal syndrome [Unknown]
  - Intentional product misuse [Not Recovered/Not Resolved]

NARRATIVE: CASE EVENT DATE: 20180428
